FAERS Safety Report 5102535-5 (Version None)
Quarter: 2006Q3

REPORT INFORMATION
  Report Type: 
  Country: None (occurrence: None)
  Receive Date: 20060912
  Receipt Date: 20060829
  Transmission Date: 20061208
  Serious: Yes (Hospitalization)
  Sender: FDA-Public Use
  Company Number: IN-AVENTIS-200619203GDDC

PATIENT
  Age: 52 Year
  Sex: Male

DRUGS (1)
  1. ARAVA [Suspect]
     Indication: RHEUMATOID ARTHRITIS
     Dosage: DOSE: UNK

REACTIONS (18)
  - ABDOMINAL PAIN [None]
  - CONJUNCTIVAL HYPERAEMIA [None]
  - DERMATITIS [None]
  - DERMATITIS EXFOLIATIVE [None]
  - DIARRHOEA [None]
  - DRUG HYPERSENSITIVITY [None]
  - LYMPHADENOPATHY [None]
  - MONOCYTE PERCENTAGE DECREASED [None]
  - MUCOUS MEMBRANE DISORDER [None]
  - NAUSEA [None]
  - NEUTROPHIL PERCENTAGE INCREASED [None]
  - ORAL MUCOSAL DISORDER [None]
  - PYREXIA [None]
  - RASH MACULAR [None]
  - RASH PRURITIC [None]
  - RED BLOOD CELL SEDIMENTATION RATE INCREASED [None]
  - SKIN EROSION [None]
  - WHITE BLOOD CELL COUNT INCREASED [None]
